FAERS Safety Report 9494850 (Version 1)
Quarter: 2013Q3

REPORT INFORMATION
  Report Type: Report from Study
  Country: BR (occurrence: BR)
  Receive Date: 20130903
  Receipt Date: 20130903
  Transmission Date: 20140515
  Serious: Yes (Death, Hospitalization)
  Sender: FDA-Public Use
  Company Number: BR-SANOFI-AVENTIS-2013SA086129

PATIENT
  Age: 7 Year
  Sex: Female
  Weight: 18.5 kg

DRUGS (2)
  1. OXALIPLATIN [Suspect]
     Indication: NEOPLASM
     Route: 042
     Dates: start: 20120112, end: 20120112
  2. OXALIPLATIN [Suspect]
     Indication: NEOPLASM
     Route: 042
     Dates: start: 20120313, end: 20120313

REACTIONS (6)
  - Disease progression [Fatal]
  - Unresponsive to stimuli [Unknown]
  - Respiratory disorder [Unknown]
  - Apnoea [Unknown]
  - Bradycardia [Unknown]
  - Cardiac arrest [Unknown]
